FAERS Safety Report 18343629 (Version 1)
Quarter: 2020Q4

REPORT INFORMATION
  Report Type: Report from Study
  Country: US (occurrence: US)
  Receive Date: 20201005
  Receipt Date: 20201005
  Transmission Date: 20210113
  Serious: Yes (Other)
  Sender: FDA-Public Use
  Company Number: US-MYLANLABS-2020M1013697

PATIENT
  Sex: Female
  Weight: 113 kg

DRUGS (2)
  1. GLATIRAMER ACETATE INJECTION [Suspect]
     Active Substance: GLATIRAMER ACETATE
     Dosage: 40 MILLIGRAM PER MILLILITRE, 3XW
     Route: 058
     Dates: end: 20200916
  2. GLATIRAMER ACETATE INJECTION [Suspect]
     Active Substance: GLATIRAMER ACETATE
     Indication: RELAPSING-REMITTING MULTIPLE SCLEROSIS
     Dosage: 40 MILLIGRAM PER MILLILITRE, 3XW
     Route: 058
     Dates: start: 20200117, end: 20200124

REACTIONS (32)
  - Peripheral swelling [Not Recovered/Not Resolved]
  - Chest pain [Unknown]
  - Vomiting [Not Recovered/Not Resolved]
  - Pain in extremity [Unknown]
  - Injection site bruising [Unknown]
  - Flushing [Unknown]
  - Hypotension [Unknown]
  - Limb discomfort [Unknown]
  - Injection site paraesthesia [Unknown]
  - Injection site pruritus [Unknown]
  - Injection site discolouration [Unknown]
  - Product dose omission issue [Unknown]
  - Uhthoff^s phenomenon [Unknown]
  - Central nervous system lesion [Unknown]
  - Hypoaesthesia [Unknown]
  - Injection site rash [Unknown]
  - Tenderness [Unknown]
  - Urticaria [Unknown]
  - Injection site erythema [Unknown]
  - Injection site pain [Unknown]
  - Anxiety [Unknown]
  - Injection site warmth [Unknown]
  - Injection site swelling [Unknown]
  - Chills [Unknown]
  - Fatigue [Unknown]
  - Lipoatrophy [Unknown]
  - Incorrect route of product administration [Unknown]
  - Dyspnoea [Unknown]
  - Injection site necrosis [Unknown]
  - Fine motor skill dysfunction [Not Recovered/Not Resolved]
  - Lymphadenopathy [Unknown]
  - Body temperature increased [Unknown]

NARRATIVE: CASE EVENT DATE: 2020
